FAERS Safety Report 7993372-2 (Version None)
Quarter: 2011Q4

REPORT INFORMATION
  Report Type: 
  Country: None (occurrence: None)
  Receive Date: 20111219
  Receipt Date: 20101228
  Transmission Date: 20120403
  Serious: Yes (Life-Threatening, Other)
  Sender: FDA-Public Use
  Company Number: US-ASTRAZENECA-2010SE51637

PATIENT
  Age: 75 Year
  Sex: Male
  Weight: 101.6 kg

DRUGS (5)
  1. NIACIN [Concomitant]
  2. CRESTOR [Suspect]
     Route: 048
     Dates: start: 20100701, end: 20101020
  3. LOTREL [Concomitant]
  4. TOPROL-XL [Concomitant]
  5. CLONIDINE [Concomitant]

REACTIONS (1)
  - RHABDOMYOLYSIS [None]
